FAERS Safety Report 8591271 (Version 3)
Quarter: 2016Q1

REPORT INFORMATION
  Report Type: Report from Study
  Country: US (occurrence: US)
  Receive Date: 20120601
  Receipt Date: 20160318
  Transmission Date: 20160526
  Serious: Yes (Hospitalization)
  Sender: FDA-Public Use
  Company Number: US-JNJFOC-20120520094

PATIENT
  Age: 13 Year
  Sex: Male
  Weight: 70.9 kg

DRUGS (4)
  1. 5-ASA [Concomitant]
     Active Substance: MESALAMINE
     Route: 048
  2. REMICADE [Suspect]
     Active Substance: INFLIXIMAB
     Indication: COLITIS ULCERATIVE
     Route: 042
     Dates: start: 200709
  3. REMICADE [Suspect]
     Active Substance: INFLIXIMAB
     Indication: COLITIS ULCERATIVE
     Route: 042
     Dates: start: 20111201
  4. OMEPRAZOLE. [Concomitant]
     Active Substance: OMEPRAZOLE

REACTIONS (2)
  - Colitis ulcerative [Recovered/Resolved]
  - Serum sickness [Recovered/Resolved]

NARRATIVE: CASE EVENT DATE: 201111
